FAERS Safety Report 5336281-X (Version None)
Quarter: 2007Q2

REPORT INFORMATION
  Report Type: 
  Country: None (occurrence: None)
  Receive Date: 20070315
  Receipt Date: 20061120
  Transmission Date: 20071010
  Serious: No
  Sender: FDA-Public Use
  Company Number: BDI-008877

PATIENT
  Age: 58 Year
  Sex: Male
  Weight: 120 kg

DRUGS (3)
  1. MULTIHANCE [Suspect]
     Indication: ASTHENIA
     Dosage: 20 ML ONCE IV
     Route: 042
     Dates: start: 20061115, end: 20061115
  2. MULTIHANCE [Suspect]
     Indication: NUCLEAR MAGNETIC RESONANCE IMAGING
     Dosage: 20 ML ONCE IV
     Route: 042
     Dates: start: 20061115, end: 20061115
  3. MULTIHANCE [Suspect]
     Indication: PAIN IN EXTREMITY
     Dosage: 20 ML ONCE IV
     Route: 042
     Dates: start: 20061115, end: 20061115

REACTIONS (1)
  - VOMITING [None]
